FAERS Safety Report 11593696 (Version 1)
Quarter: 2015Q4

REPORT INFORMATION
  Report Type: Report from Study
  Country: JP (occurrence: JP)
  Receive Date: 20151005
  Receipt Date: 20151005
  Transmission Date: 20160304
  Serious: Yes (Death, Life-Threatening, Other)
  Sender: FDA-Public Use
  Company Number: JP-GLAXOSMITHKLINE-A201306114

PATIENT
  Age: 75 Year
  Sex: Female
  Weight: 49 kg

DRUGS (30)
  1. ELTROMBOPAG [Suspect]
     Active Substance: ELTROMBOPAG
     Dosage: 37.5 MG, 1D
     Route: 048
     Dates: start: 20110722, end: 20110810
  2. CLARITH [Concomitant]
     Active Substance: CLARITHROMYCIN
     Dosage: 600 MG, 1D
     Dates: end: 20110918
  3. ANTEBATE:OINTMENT [Concomitant]
     Dosage: UNK UNK, BID
     Dates: start: 20110224
  4. NORVASC [Concomitant]
     Active Substance: AMLODIPINE BESYLATE
     Dosage: 5 MG, 1D
     Dates: start: 20110816, end: 20110822
  5. AMLODIN OD [Concomitant]
     Active Substance: AMLODIPINE BESYLATE
     Dosage: 5 MG, 1D
     Dates: end: 20110906
  6. DOGMATYL [Concomitant]
     Active Substance: SULPIRIDE
     Dosage: 50 MG, 1D
     Dates: end: 20110918
  7. CRAVIT [Concomitant]
     Active Substance: LEVOFLOXACIN
     Dosage: 500 MG, 1D
     Dates: start: 20110815, end: 20110918
  8. RIFADIN [Concomitant]
     Active Substance: RIFAMPIN
     Dosage: 750 MG, 1D
     Dates: end: 20110918
  9. CHINESE MEDICINE [Concomitant]
     Active Substance: UNSPECIFIED INGREDIENT
     Dosage: 7.5 G, 1D
     Dates: end: 20110331
  10. ELTROMBOPAG [Suspect]
     Active Substance: ELTROMBOPAG
     Dosage: 12.5 MG, 1D
     Route: 048
     Dates: start: 20110907, end: 20110915
  11. ELTROMBOPAG [Suspect]
     Active Substance: ELTROMBOPAG
     Dosage: 37.5 MG, 1D
     Route: 048
     Dates: start: 20110407, end: 20110622
  12. ELTROMBOPAG [Suspect]
     Active Substance: ELTROMBOPAG
     Dosage: 25 MG, 1D
     Route: 048
     Dates: start: 20110623, end: 20110721
  13. TAKEPRON [Concomitant]
     Active Substance: LANSOPRAZOLE
     Indication: IMMUNE THROMBOCYTOPENIC PURPURA
     Dosage: 15 MG, 1D
     Dates: end: 20110918
  14. MICAMLO [Concomitant]
     Active Substance: AMLODIPINE BESYLATE\TELMISARTAN
     Dosage: 2 DF, 1D
     Dates: start: 20110820, end: 20110917
  15. ASTAT:OINTMENT [Concomitant]
     Dosage: UNK UNK, BID
     Dates: start: 20110218
  16. LUMIGAN [Concomitant]
     Active Substance: BIMATOPROST
     Dosage: UNK UNK, QD
     Dates: start: 20110214
  17. AMLODIN OD [Concomitant]
     Active Substance: AMLODIPINE BESYLATE
     Dosage: 7.5 MG, 1D
     Dates: end: 20110331
  18. CRAVIT [Concomitant]
     Active Substance: LEVOFLOXACIN
     Dosage: 500 MG, 1D
     Dates: end: 20110906
  19. RIFADIN [Concomitant]
     Active Substance: RIFAMPIN
     Dosage: 450 MG, 1D
     Dates: end: 20110331
  20. ELTROMBOPAG [Suspect]
     Active Substance: ELTROMBOPAG
     Dosage: 25 MG, 1D
     Route: 048
     Dates: start: 20110303, end: 20110406
  21. ADONA (AC-17) [Concomitant]
     Indication: IMMUNE THROMBOCYTOPENIC PURPURA
     Dosage: 90 MG, 1D
     Dates: end: 20110906
  22. UREPEARL [Concomitant]
     Active Substance: UREA
     Dosage: UNK UNK, BID
     Dates: start: 20110307
  23. ELTROMBOPAG [Suspect]
     Active Substance: ELTROMBOPAG
     Indication: IMMUNE THROMBOCYTOPENIC PURPURA
     Dosage: 12.5 MG, 1D
     Route: 048
     Dates: start: 20110215, end: 20110302
  24. ELTROMBOPAG [Suspect]
     Active Substance: ELTROMBOPAG
     Dosage: 25 MG, 1D
     Route: 048
     Dates: start: 20110811, end: 20110906
  25. RACOL [Concomitant]
     Active Substance: AMINO ACIDS\DEXTROSE\ELECTROLYTES NOS
     Indication: NUTRITIONAL SUPPLEMENTATION
     Dosage: 200 ML, 1D
     Dates: start: 20110820, end: 20110918
  26. NEUROVITAN [Concomitant]
     Active Substance: VITAMINS
     Dosage: 408 MG, 1D
     Dates: end: 20110918
  27. TRANSAMIN [Concomitant]
     Active Substance: TRANEXAMIC ACID
     Indication: IMMUNE THROMBOCYTOPENIC PURPURA
     Dosage: 750 MG, 1D
     Dates: end: 20110906
  28. MUCODYNE [Concomitant]
     Active Substance: CARBOCYSTEINE
     Dosage: 700 MG, 1D
     Dates: end: 20110918
  29. TIMOPTOL-XE [Concomitant]
     Active Substance: TIMOLOL
     Dosage: UNK UNK, QD
     Dates: start: 20110214
  30. MICARDIS [Concomitant]
     Active Substance: TELMISARTAN
     Dosage: 80 MG, 1D
     Dates: start: 20110819, end: 20110819

REACTIONS (15)
  - Hallucination [Not Recovered/Not Resolved]
  - Mycobacterium avium complex infection [Not Recovered/Not Resolved]
  - Sepsis [Not Recovered/Not Resolved]
  - Pain [Not Recovered/Not Resolved]
  - Pain [Recovering/Resolving]
  - Metastases to bone [Fatal]
  - Hepatitis C [Not Recovered/Not Resolved]
  - Haemoptysis [Not Recovered/Not Resolved]
  - Disseminated intravascular coagulation [Not Recovered/Not Resolved]
  - Pyrexia [Not Recovered/Not Resolved]
  - Breast cancer [Fatal]
  - Cancer pain [Not Recovered/Not Resolved]
  - Pruritus [Recovering/Resolving]
  - Cough [Not Recovered/Not Resolved]
  - Dyspnoea [Not Recovered/Not Resolved]

NARRATIVE: CASE EVENT DATE: 20110309
